FAERS Safety Report 20368401 (Version 5)
Quarter: 2022Q2

REPORT INFORMATION
  Report Type: Spontaneous
  Country: GB (occurrence: GB)
  Receive Date: 20220124
  Receipt Date: 20220603
  Transmission Date: 20220721
  Serious: No
  Sender: FDA-Public Use
  Company Number: GB-PFIZER INC-202200061240

PATIENT
  Age: 79 Year
  Sex: Female

DRUGS (1)
  1. GENOTROPIN [Suspect]
     Active Substance: SOMATROPIN
     Dosage: 5.3 MG

REACTIONS (2)
  - Drug dose omission by device [Unknown]
  - Device information output issue [Unknown]
